FAERS Safety Report 10246133 (Version 2)
Quarter: 2014Q2

REPORT INFORMATION
  Report Type: Spontaneous
  Country: CA (occurrence: CA)
  Receive Date: 20140619
  Receipt Date: 20140620
  Transmission Date: 20141212
  Serious: Yes (Hospitalization)
  Sender: FDA-Public Use
  Company Number: CA-ROCHE-1421028

PATIENT
  Age: 13 Year
  Sex: Male

DRUGS (3)
  1. TRETINOIN [Suspect]
     Indication: ACUTE PROMYELOCYTIC LEUKAEMIA
     Route: 065
  2. DAUNORUBICIN [Concomitant]
     Dosage: DAYS 3-6
     Route: 065
  3. CYTARABINE [Concomitant]
     Dosage: DAYS 3-9
     Route: 065

REACTIONS (4)
  - Ataxia [Recovered/Resolved]
  - Tremor [Recovered/Resolved]
  - CSF pressure increased [Recovered/Resolved]
  - Benign intracranial hypertension [Recovered/Resolved]
